FAERS Safety Report 10690063 (Version 1)
Quarter: 2015Q1

REPORT INFORMATION
  Report Type: Spontaneous
  Country: GB (occurrence: GB)
  Receive Date: 20150105
  Receipt Date: 20150105
  Transmission Date: 20150720
  Serious: Yes (Life-Threatening, Hospitalization)
  Sender: FDA-Public Use
  Company Number: GB-TEVA-530808ISR

PATIENT
  Sex: Male

DRUGS (2)
  1. ANAESTHETIC [Concomitant]
     Active Substance: UNSPECIFIED INGREDIENT
  2. AMOXICILLIN W/CLAVULANIC ACID [Suspect]
     Active Substance: AMOXICILLIN\CLAVULANIC ACID
     Indication: ANTIBIOTIC PROPHYLAXIS
     Route: 042
     Dates: start: 20140407, end: 20140407

REACTIONS (2)
  - Cardiac arrest [Recovered/Resolved]
  - Hypersensitivity [Unknown]

NARRATIVE: CASE EVENT DATE: 20140407
